FAERS Safety Report 19281856 (Version 1)
Quarter: 2021Q2

REPORT INFORMATION
  Report Type: Spontaneous
  Country: US (occurrence: US)
  Receive Date: 20210520
  Receipt Date: 20210520
  Transmission Date: 20210717
  Serious: No
  Sender: FDA-Public Use
  Company Number: US-ORGANON-O2105USA001272

PATIENT
  Sex: Female

DRUGS (13)
  1. HCG [Concomitant]
     Active Substance: GONADOTROPHIN, CHORIONIC
  2. FOLLISTIM AQ [Suspect]
     Active Substance: FOLLITROPIN
     Indication: INFERTILITY FEMALE
     Dosage: 150 UNITS, STRENGTH 900IU/1.08 ML
     Route: 058
     Dates: start: 20210223
  3. APAP/CODEINE [CODEINE;PARACETAMOL] [Concomitant]
     Active Substance: ACETAMINOPHEN\CODEINE PHOSPHATE
  4. DOXYCYCLINE HYCLATE. [Concomitant]
     Active Substance: DOXYCYCLINE HYCLATE
  5. LEUPROLIDE ACETATE. [Concomitant]
     Active Substance: LEUPROLIDE ACETATE
  6. MENOPUR [Concomitant]
     Active Substance: FOLLITROPIN\LUTEINIZING HORMONE
  7. GANIRELIX ACETATE. [Suspect]
     Active Substance: GANIRELIX ACETATE
     Dosage: UNK
  8. ESTRADIOL. [Concomitant]
     Active Substance: ESTRADIOL
  9. ISIBLOOM [Concomitant]
     Active Substance: DESOGESTREL\ETHINYL ESTRADIOL
  10. OVIDREL [Concomitant]
     Active Substance: CHORIOGONADOTROPIN ALFA
  11. DOXYCYCLIN [DOXYCYCLINE MONOHYDRATE] [Concomitant]
  12. LETROZOLE. [Concomitant]
     Active Substance: LETROZOLE
  13. PROGESTERONE. [Concomitant]
     Active Substance: PROGESTERONE

REACTIONS (2)
  - Headache [Unknown]
  - Fatigue [Unknown]
